FAERS Safety Report 7196335-2 (Version None)
Quarter: 2010Q4

REPORT INFORMATION
  Report Type: 
  Country: None (occurrence: None)
  Receive Date: 20101223
  Receipt Date: 20101021
  Transmission Date: 20110411
  Serious: No
  Sender: FDA-Public Use
  Company Number: US-AMGEN-USASP2010001382

PATIENT

DRUGS (4)
  1. ENBREL [Suspect]
     Indication: JUVENILE ARTHRITIS
     Dosage: 18.5 MG, QWK
     Dates: start: 20090504
  2. FLUTICASONE PROPIONATE [Concomitant]
     Dosage: 50 A?G, UNK
  3. CLARITIN                           /00413701/ [Concomitant]
     Dosage: 10 MG, UNK
  4. MULTI-VITAMINS [Concomitant]

REACTIONS (3)
  - CONTUSION [None]
  - INJECTION SITE PAIN [None]
  - INJECTION SITE SWELLING [None]
